FAERS Safety Report 6646314-6 (Version None)
Quarter: 2010Q1

REPORT INFORMATION
  Report Type: 
  Country: None (occurrence: None)
  Receive Date: 20100323
  Receipt Date: 20100310
  Transmission Date: 20100710
  Serious: Yes (Death, Other)
  Sender: FDA-Public Use
  Company Number: JP-BAYER-201010840BYL

PATIENT
  Age: 27 Year
  Sex: Female

DRUGS (7)
  1. FLUDARA [Suspect]
     Indication: STEM CELL TRANSPLANT
     Route: 065
     Dates: start: 20070311
  2. FLUDARA [Suspect]
     Route: 065
  3. CYTARABINE [Concomitant]
     Route: 065
     Dates: start: 20070311
  4. METHYLPREDNISOLONE [Concomitant]
     Route: 065
     Dates: start: 20070311
  5. TACROLIMUS HYDRATE [Concomitant]
     Route: 065
     Dates: start: 20070329
  6. HOSCARNET [Concomitant]
     Indication: CYTOMEGALOVIRUS CHORIORETINITIS
     Route: 065
     Dates: start: 20070715
  7. GANCICLOVIR [Concomitant]
     Indication: CYTOMEGALOVIRUS CHORIORETINITIS
     Route: 065
     Dates: start: 20070806

REACTIONS (7)
  - BLOOD CREATININE INCREASED [None]
  - CONJUNCTIVITIS [None]
  - CORNEAL EPITHELIUM DEFECT [None]
  - CYTOMEGALOVIRUS CHORIORETINITIS [None]
  - GRAFT VERSUS HOST DISEASE [None]
  - PULMONARY ALVEOLAR HAEMORRHAGE [None]
  - RETINAL DETACHMENT [None]
